FAERS Safety Report 15857479 (Version 1)
Quarter: 2019Q1

REPORT INFORMATION
  Report Type: Spontaneous
  Country: IT (occurrence: IT)
  Receive Date: 20190123
  Receipt Date: 20190123
  Transmission Date: 20190417
  Serious: Yes (Other)
  Sender: FDA-Public Use
  Company Number: IT-DSJP-DSE-2019-102360

PATIENT

DRUGS (3)
  1. EDOXABAN [Suspect]
     Active Substance: EDOXABAN TOSYLATE
     Indication: ATRIAL FIBRILLATION
     Dosage: 60 MG
     Route: 048
  2. CLOPIDOGREL                        /01220704/ [Concomitant]
     Active Substance: CLOPIDOGREL BESILATE
     Indication: PRODUCT USED FOR UNKNOWN INDICATION
     Dosage: UNK
     Dates: start: 201712
  3. ACETYLSALICYLIC ACID [Concomitant]
     Active Substance: ASPIRIN
     Indication: PRODUCT USED FOR UNKNOWN INDICATION
     Dosage: UNK MG
     Dates: start: 201712, end: 201803

REACTIONS (7)
  - Left ventricular dilatation [Recovering/Resolving]
  - Mitral valve sclerosis [Recovering/Resolving]
  - Left ventricular hypertrophy [Recovering/Resolving]
  - Aortic valve sclerosis [Recovering/Resolving]
  - Tricuspid valve incompetence [Recovering/Resolving]
  - Cardiac aneurysm [Recovering/Resolving]
  - Left ventricular dysfunction [Recovering/Resolving]

NARRATIVE: CASE EVENT DATE: 2017
